FAERS Safety Report 5714310-9 (Version None)
Quarter: 2008Q2

REPORT INFORMATION
  Report Type: 
  Country: None (occurrence: None)
  Receive Date: 20080422
  Receipt Date: 20080422
  Transmission Date: 20081010
  Serious: Yes (Hospitalization)
  Sender: FDA-Public Use
  Company Number: None

PATIENT
  Age: 68 Year
  Sex: Male

DRUGS (1)
  1. IBUPROFEN TABLETS [Suspect]
     Indication: PAIN
     Dosage: 800 MG TID PO
     Route: 048
     Dates: start: 20071010, end: 20080204

REACTIONS (6)
  - DIARRHOEA [None]
  - DUODENAL ULCER HAEMORRHAGE [None]
  - GASTRIC HAEMORRHAGE [None]
  - INAPPROPRIATE SCHEDULE OF DRUG ADMINISTRATION [None]
  - NAUSEA [None]
  - VOMITING [None]
